FAERS Safety Report 11728916 (Version 2)
Quarter: 2017Q1

REPORT INFORMATION
  Report Type: Spontaneous
  Country: US (occurrence: US)
  Receive Date: 20151112
  Receipt Date: 20170324
  Transmission Date: 20170428
  Serious: Yes (Other)
  Sender: FDA-Public Use
  Company Number: US-ELI_LILLY_AND_COMPANY-US201511002509

PATIENT
  Sex: Female

DRUGS (5)
  1. VITAMIN D                          /00107901/ [Concomitant]
     Active Substance: ERGOCALCIFEROL
     Dosage: UNK, UNKNOWN
     Route: 065
  2. LORAZEPAM. [Concomitant]
     Active Substance: LORAZEPAM
     Dosage: UNK, QOD
     Route: 065
  3. CYMBALTA [Suspect]
     Active Substance: DULOXETINE HYDROCHLORIDE
     Indication: PAIN
     Dosage: 1 DF, UNKNOWN
     Route: 065
     Dates: start: 2011, end: 201503
  4. CYMBALTA [Suspect]
     Active Substance: DULOXETINE HYDROCHLORIDE
     Indication: DEPRESSION
     Dosage: 60 MG, QD
     Route: 065
  5. TRAZODONE [Concomitant]
     Active Substance: TRAZODONE HYDROCHLORIDE
     Dosage: 100 DF, PRN
     Route: 065

REACTIONS (10)
  - Vertigo [Unknown]
  - Fatigue [Unknown]
  - Paraesthesia [Unknown]
  - Sleep disorder [Unknown]
  - Drug withdrawal syndrome [Unknown]
  - Suicidal ideation [Unknown]
  - Dizziness [Unknown]
  - Nausea [Unknown]
  - Anxiety [Unknown]
  - Insomnia [Unknown]
